FAERS Safety Report 6147044-X (Version None)
Quarter: 2009Q2

REPORT INFORMATION
  Report Type: 
  Country: None (occurrence: None)
  Receive Date: 20090403
  Receipt Date: 20090326
  Transmission Date: 20091009
  Serious: Yes (Other)
  Sender: FDA-Public Use
  Company Number: 2009SP006849

PATIENT
  Age: 60 Year
  Sex: Male

DRUGS (1)
  1. DIPROSTENE (BETAMETHASONE SODIUM PHOSPHATE/DIPROPIONATE) (BETAMETHASON [Suspect]
     Indication: COMPLEX REGIONAL PAIN SYNDROME
     Dosage: IA
     Route: 014

REACTIONS (1)
  - TENDON DISORDER [None]
